FAERS Safety Report 5166384-4 (Version None)
Quarter: 2006Q4

REPORT INFORMATION
  Report Type: 
  Country: None (occurrence: None)
  Receive Date: 20061129
  Receipt Date: 20061114
  Transmission Date: 20070319
  Serious: Yes (Life-Threatening, Hospitalization)
  Sender: FDA-Public Use
  Company Number: 2006S1010690

PATIENT
  Age: 47 Year
  Sex: Male

DRUGS (4)
  1. SULFAMYLON [Suspect]
     Indication: THERMAL BURN
     Dosage: TOP
     Route: 061
  2. TOBRAMYCIN (CON.) [Concomitant]
  3. TICARCILLIN DISODIUM (CON.) [Concomitant]
  4. NAFCILLIN SODIUM (CON.) [Concomitant]

REACTIONS (14)
  - AGITATION [None]
  - ALLERGIC TRANSFUSION REACTION [None]
  - ANXIETY [None]
  - BLOOD PRESSURE INCREASED [None]
  - DEPRESSED LEVEL OF CONSCIOUSNESS [None]
  - DRUG HYPERSENSITIVITY [None]
  - HAEMATOCRIT DECREASED [None]
  - LUNG INFILTRATION [None]
  - PATHOGEN RESISTANCE [None]
  - RALES [None]
  - RESPIRATORY FAILURE [None]
  - SEPSIS [None]
  - VENTILATION/PERFUSION SCAN ABNORMAL [None]
  - WOUND INFECTION STAPHYLOCOCCAL [None]
